FAERS Safety Report 20765183 (Version 3)
Quarter: 2023Q2

REPORT INFORMATION
  Report Type: Spontaneous
  Country: US (occurrence: US)
  Receive Date: 20220428
  Receipt Date: 20230512
  Transmission Date: 20230722
  Serious: Yes (Death)
  Sender: FDA-Public Use
  Company Number: US-PFIZER INC-202101325879

PATIENT
  Age: 72 Year
  Sex: Female
  Weight: 60.9 kg

DRUGS (1)
  1. BESPONSA [Suspect]
     Active Substance: INOTUZUMAB OZOGAMICIN
     Indication: Leukaemia
     Dosage: 0.8MG\50CC SOLUTION DOSE AMOUNT EVERY WEEK
     Dates: start: 20201026, end: 20210310

REACTIONS (3)
  - Prescribed overdose [Fatal]
  - Hepatic cirrhosis [Fatal]
  - Hepatic enzyme increased [Unknown]

NARRATIVE: CASE EVENT DATE: 20201026
